FAERS Safety Report 5000506-0 (Version None)
Quarter: 2006Q2

REPORT INFORMATION
  Report Type: 
  Country: None (occurrence: None)
  Receive Date: 20060501
  Receipt Date: 20060417
  Transmission Date: 20061013
  Serious: Yes (Other)
  Sender: FDA-Public Use
  Company Number: 2006051916

PATIENT
  Sex: Male

DRUGS (12)
  1. VIAGRA [Suspect]
     Indication: ERECTILE DYSFUNCTION
     Dosage: 50 MG, AS  NECESSARY
  2. LITHIUM CARBONATE [Concomitant]
  3. KLONOPIN [Concomitant]
  4. WELLBUTRIN [Concomitant]
  5. MULTIVITAMIN [Concomitant]
  6. CALCIUM GLUCONATE [Concomitant]
  7. VITAMIN B-12 [Concomitant]
  8. GEMFIBROZIL [Concomitant]
  9. BUSPAR [Concomitant]
  10. CELEXA [Concomitant]
  11. ANTIHYPERTENSIVES [Concomitant]
  12. PAXIL [Concomitant]

REACTIONS (3)
  - DRUG EFFECT DECREASED [None]
  - DRUG INEFFECTIVE [None]
  - GASTRIC BYPASS [None]
